FAERS Safety Report 5482177-2 (Version None)
Quarter: 2007Q4

REPORT INFORMATION
  Report Type: 
  Country: None (occurrence: None)
  Receive Date: 20071005
  Receipt Date: 20070925
  Transmission Date: 20080405
  Serious: Yes (Disabling)
  Sender: FDA-Public Use
  Company Number: 07H-008-0313260-00

PATIENT
  Age: 7 Year
  Sex: Male

DRUGS (7)
  1. PRECEDEX [Suspect]
     Dosage: INTRAVENOUS
     Route: 042
     Dates: start: 20060806, end: 20070808
  2. POTASSIUM CHLORIDE [Concomitant]
  3. MIDAZOLAM HCL [Concomitant]
  4. TOPIRAMATE [Concomitant]
  5. ENOXAPARIN SODIUM [Concomitant]
  6. METHYLPREDNISOLONE [Concomitant]
  7. ERYTHROMYCIN [Concomitant]

REACTIONS (1)
  - CONVULSION [None]
